FAERS Safety Report 17587082 (Version 9)
Quarter: 2020Q3

REPORT INFORMATION
  Report Type: Report from Study
  Country: US (occurrence: US)
  Receive Date: 20200326
  Receipt Date: 20200728
  Transmission Date: 20201102
  Serious: Yes (Other)
  Sender: FDA-Public Use
  Company Number: US-GLAXOSMITHKLINE-US2020AMR043321

PATIENT
  Age: 76 Year
  Sex: Female

DRUGS (6)
  1. NIRAPARIB [Suspect]
     Active Substance: NIRAPARIB
     Dosage: 200 MG, QD
     Dates: start: 20200324
  2. NIRAPARIB [Suspect]
     Active Substance: NIRAPARIB
     Dosage: 200 MG, QD
  3. GABAPENTIN. [Concomitant]
     Active Substance: GABAPENTIN
     Indication: PRODUCT USED FOR UNKNOWN INDICATION
     Dosage: UNK
  4. NIRAPARIB [Suspect]
     Active Substance: NIRAPARIB
     Dosage: 200 MG, DAILY
     Dates: start: 20200401
  5. NIRAPARIB [Suspect]
     Active Substance: NIRAPARIB
     Dosage: 200 MG, QD
     Dates: start: 20200310
  6. NIRAPARIB [Suspect]
     Active Substance: NIRAPARIB
     Indication: OVARIAN CANCER
     Dosage: 300 MG, QD
     Dates: start: 20200214, end: 20200310

REACTIONS (13)
  - Malaise [Unknown]
  - Contusion [Recovering/Resolving]
  - Transfusion [Unknown]
  - Blood pressure fluctuation [Unknown]
  - Red blood cell count decreased [Unknown]
  - Haemorrhage [Unknown]
  - Blood pressure increased [Not Recovered/Not Resolved]
  - Headache [Recovering/Resolving]
  - Dizziness [Recovered/Resolved]
  - Gait disturbance [Unknown]
  - Stoma site discomfort [Recovering/Resolving]
  - Platelet count decreased [Recovering/Resolving]
  - Paraesthesia [Unknown]
